FAERS Safety Report 22141836 (Version 1)
Quarter: 2023Q1

REPORT INFORMATION
  Report Type: Spontaneous
  Country: US (occurrence: US)
  Receive Date: 20230327
  Receipt Date: 20230327
  Transmission Date: 20230417
  Serious: No
  Sender: FDA-Public Use
  Company Number: US-PFIZER INC-202300131094

PATIENT
  Age: 59 Year
  Sex: Female

DRUGS (14)
  1. XELJANZ [Suspect]
     Active Substance: TOFACITINIB CITRATE
     Dosage: 5 MG, 2X/DAY
     Dates: start: 20221230
  2. DOXYCYCLINE [Concomitant]
     Active Substance: DOXYCYCLINE
  3. INSULIN LISPRO [Concomitant]
     Active Substance: INSULIN LISPRO
  4. ACETAMINOPHEN AND CODEINE [Concomitant]
     Active Substance: ACETAMINOPHEN\CODEINE PHOSPHATE
  5. PREDNISONE [Concomitant]
     Active Substance: PREDNISONE
  6. ATENOLOL [Concomitant]
     Active Substance: ATENOLOL
  7. VICTOZA [Concomitant]
     Active Substance: LIRAGLUTIDE
  8. DULOXETINE [Concomitant]
     Active Substance: DULOXETINE
  9. FERROUS SULFATE [Concomitant]
     Active Substance: FERROUS SULFATE
  10. AMLODIPINE [Concomitant]
     Active Substance: AMLODIPINE BESYLATE
  11. GABAPENTIN [Concomitant]
     Active Substance: GABAPENTIN
  12. METFORMIN [Concomitant]
     Active Substance: METFORMIN HYDROCHLORIDE
  13. ATORVASTATIN [Concomitant]
     Active Substance: ATORVASTATIN
  14. ACETAMINOPHEN\HYDROCODONE [Concomitant]
     Active Substance: ACETAMINOPHEN\HYDROCODONE

REACTIONS (2)
  - Headache [Recovered/Resolved]
  - Drug ineffective [Recovered/Resolved]

NARRATIVE: CASE EVENT DATE: 20221201
